FAERS Safety Report 4381563-1 (Version None)
Quarter: 2004Q2

REPORT INFORMATION
  Report Type: 
  Country: None (occurrence: None)
  Receive Date: 20040621
  Receipt Date: 20040507
  Transmission Date: 20050107
  Serious: Yes (Congenital Anomaly, Other)
  Sender: FDA-Public Use
  Company Number: 200414964GDDC

PATIENT
  Age: 24 Year
  Sex: Female

DRUGS (4)
  1. LANTUS [Suspect]
     Indication: DIABETES MELLITUS
     Dates: start: 20021201, end: 20040101
  2. ATORVASTATIN CALCIUM [Suspect]
  3. HUMALOG [Concomitant]
     Route: 058
  4. METFORMIN HCL [Concomitant]

REACTIONS (6)
  - ABORTION INDUCED [None]
  - DRUG EXPOSURE DURING PREGNANCY [None]
  - FOETAL DISORDER [None]
  - HOLOPROSENCEPHALY [None]
  - MICROCEPHALY [None]
  - NOSE DEFORMITY [None]
